FAERS Safety Report 13958675 (Version 1)
Quarter: 2017Q3

REPORT INFORMATION
  Report Type: Spontaneous
  Country: US (occurrence: US)
  Receive Date: 20170911
  Receipt Date: 20170911
  Transmission Date: 20171128
  Serious: No
  Sender: FDA-Public Use
  Company Number: US-ROCHE-1089128

PATIENT
  Sex: Female

DRUGS (1)
  1. RITUXAN [Suspect]
     Active Substance: RITUXIMAB
     Indication: IMMUNE THROMBOCYTOPENIC PURPURA
     Route: 042
     Dates: start: 20120601, end: 20120608

REACTIONS (3)
  - Feeling abnormal [Unknown]
  - Urinary tract infection [Recovered/Resolved]
  - Back pain [Unknown]

NARRATIVE: CASE EVENT DATE: 20120615
